FAERS Safety Report 4381146-3 (Version None)
Quarter: 2004Q2

REPORT INFORMATION
  Report Type: 
  Country: None (occurrence: None)
  Receive Date: 20040616
  Receipt Date: 20040607
  Transmission Date: 20050107
  Serious: Yes (Hospitalization)
  Sender: FDA-Public Use
  Company Number: 2003178174US

PATIENT
  Age: 52 Year
  Sex: Male
  Weight: 61.7 kg

DRUGS (2)
  1. ELLENCE [Suspect]
     Indication: SMALL CELL LUNG CANCER STAGE UNSPECIFIED
     Dosage: 60 MG/M2, SINGLE, UNKNOWN
     Dates: start: 20030918
  2. CAMPTOSAR [Suspect]
     Indication: SMALL CELL LUNG CANCER STAGE UNSPECIFIED
     Dosage: 70 MG/M2, SINGLE, UNKNOWN
     Dates: start: 20030918

REACTIONS (9)
  - BLOOD CHLORIDE DECREASED [None]
  - BLOOD POTASSIUM INCREASED [None]
  - BLOOD SODIUM DECREASED [None]
  - COLLAPSE OF LUNG [None]
  - DYSPNOEA [None]
  - MALIGNANT NEOPLASM PROGRESSION [None]
  - NEUTROPHIL COUNT INCREASED [None]
  - PLEURAL EFFUSION [None]
  - SMALL CELL LUNG CANCER STAGE UNSPECIFIED [None]
